FAERS Safety Report 21164671 (Version 6)
Quarter: 2023Q2

REPORT INFORMATION
  Report Type: Spontaneous
  Country: US (occurrence: None)
  Receive Date: 20220803
  Receipt Date: 20230407
  Transmission Date: 20230721
  Serious: Yes (Hospitalization, Other)
  Sender: FDA-Public Use
  Company Number: US-Unichem Pharmaceuticals (USA) Inc-UCM202207-000716

PATIENT
  Age: 61 Year
  Sex: Female
  Weight: 70 kg

DRUGS (31)
  1. MELOXICAM [Suspect]
     Active Substance: MELOXICAM
     Indication: Arthritis
     Dates: start: 20220324, end: 20220513
  2. MELOXICAM [Suspect]
     Active Substance: MELOXICAM
     Indication: Arthritis
     Dates: start: 20220324
  3. CATHFLO ACTIVASE [Concomitant]
     Active Substance: ALTEPLASE
     Indication: Product used for unknown indication
     Route: 042
     Dates: start: 20220718
  4. MONTELUKAST [Concomitant]
     Active Substance: MONTELUKAST SODIUM
     Indication: Product used for unknown indication
  5. PHENTERMINE [Concomitant]
     Active Substance: PHENTERMINE
     Indication: Obesity
     Dosage: UNKNOWN
  6. FLUTICASONE [Concomitant]
     Active Substance: FLUTICASONE
     Indication: Product used for unknown indication
  7. MORPHINE SULFATE [Concomitant]
     Active Substance: MORPHINE SULFATE
     Indication: Product used for unknown indication
     Dosage: 4 MG (1 ML)?(1 ML/DAY)?(1 ML/DOSE)
     Route: 042
     Dates: start: 20220518, end: 20220518
  8. INSULIN HUMAN [Concomitant]
     Active Substance: INSULIN HUMAN
     Indication: Product used for unknown indication
     Dosage: 10 UNITS (0.1 ML)?(0 001265 ML/KG/DAY)?(0.001265 ML/KG/DOSE)
     Route: 042
     Dates: start: 20220518, end: 20220518
  9. FUROSEMIDE [Concomitant]
     Active Substance: FUROSEMIDE
     Indication: Product used for unknown indication
     Dosage: 20 MG (2 ML)?(20 MG/DAY)?(20 MG/DOSE)
     Route: 042
     Dates: start: 20220522
  10. ALBUTEROL 2.5 MG/IPRATROPIUM 0.5MG [Concomitant]
     Indication: Product used for unknown indication
     Dosage: 3 ML (1 VIAL)?(18 ML/DAY)?(3 ML/DOSE)
     Route: 045
     Dates: start: 20220522, end: 20220524
  11. POTASSIUM CHLORIDE [Concomitant]
     Active Substance: POTASSIUM CHLORIDE
     Indication: Product used for unknown indication
     Dosage: 40 MEQ (2 TABLET)
     Dates: start: 20220524, end: 20220524
  12. SODIUM CHLORIDE [Concomitant]
     Active Substance: SODIUM CHLORIDE
     Indication: Product used for unknown indication
     Dosage: 3 ML (0.3 SYRINGES)
     Route: 042
     Dates: start: 20220518, end: 20220519
  13. SODIUM CHLORIDE [Concomitant]
     Active Substance: SODIUM CHLORIDE
     Dosage: 3 ML (0.3 SYRINGES)
     Route: 042
     Dates: start: 20220518, end: 20220527
  14. CEFAZOLIN [Concomitant]
     Active Substance: CEFAZOLIN
     Indication: Product used for unknown indication
     Dosage: 1 GM VIAL - 2 GM
     Route: 042
     Dates: start: 20220518, end: 20220518
  15. PROPOFOL [Concomitant]
     Active Substance: PROPOFOL
     Indication: Product used for unknown indication
     Dosage: 200 MG (20 ML) IV EMULSION 10 MG/ML 20 ML VIAL
     Route: 042
     Dates: start: 20220518, end: 20220518
  16. ROCURONIUM BROMIDE [Concomitant]
     Active Substance: ROCURONIUM BROMIDE
     Indication: Product used for unknown indication
     Dosage: 50 MG (5 ML) 10 MG/ML 5 ML VIAL
     Route: 042
     Dates: start: 20220518, end: 20220518
  17. SUCCINYLCHOLINE CHLORIDE [Concomitant]
     Active Substance: SUCCINYLCHOLINE CHLORIDE
     Indication: Product used for unknown indication
     Dosage: 100 MG (5 ML) 20 MG/ML 5 ML SYR
     Dates: start: 20220518, end: 20220518
  18. LIDOCAINE [Concomitant]
     Active Substance: LIDOCAINE
     Indication: Product used for unknown indication
     Dosage: 100 MG (5 ML) 2% 100 MG/5 ML SYR
     Route: 042
     Dates: start: 20220518, end: 20220518
  19. PHENYLEPHRINE HCL [Concomitant]
     Active Substance: PHENYLEPHRINE HYDROCHLORIDE
     Indication: Product used for unknown indication
     Dosage: 10 MG (1 ML) 10 MG/ML VIAL
     Dates: start: 20220518, end: 20220518
  20. SEVOFLURANE [Concomitant]
     Active Substance: SEVOFLURANE
     Indication: Product used for unknown indication
     Dosage: 250 ML (1 BOTTLE)
     Dates: start: 20220518, end: 20220518
  21. SUGAMMADEX SODIUM [Concomitant]
     Active Substance: SUGAMMADEX SODIUM
     Indication: Product used for unknown indication
     Dosage: 200 MG- (2 ML)?200 MG/2 ML VIAL
     Route: 042
     Dates: start: 20220518, end: 20220518
  22. FENTANYL CITRATE [Concomitant]
     Active Substance: FENTANYL CITRATE
     Indication: Product used for unknown indication
     Dosage: 50 MCG/ML 2 ML VIAL
     Dates: start: 20220518, end: 20220518
  23. CALCIUM GLUCONATE [Concomitant]
     Active Substance: CALCIUM GLUCONATE
     Indication: Product used for unknown indication
     Dosage: 1 GM/100 ML NACL 0.8% BAG
     Route: 042
     Dates: start: 20220518, end: 20220518
  24. POTASSIUM PHOSPHATE, DIBASIC [Concomitant]
     Active Substance: POTASSIUM PHOSPHATE, DIBASIC
     Indication: Product used for unknown indication
     Dosage: 3 MM/ML 5 ML VIAL IN SODIUM CHLORIDE 0.9% 100 ML
     Route: 042
     Dates: start: 20220521, end: 20220521
  25. MIDAZOLAM HYDROCHLORIDE [Concomitant]
     Active Substance: MIDAZOLAM HYDROCHLORIDE
     Indication: Product used for unknown indication
     Dosage: 1 MG/ML 2 ML VIAL
  26. DEXAMETHASONE [Concomitant]
     Active Substance: DEXAMETHASONE
     Indication: Product used for unknown indication
     Dosage: 4 MG/ML VIAL
  27. BACTRIM DS [Concomitant]
     Active Substance: SULFAMETHOXAZOLE\TRIMETHOPRIM
     Indication: Product used for unknown indication
     Dosage: 800/160 MG
  28. Merrem Inj [Concomitant]
     Indication: Abdominal infection
     Dosage: 500 MG IN SODIUM CHLORIDE 0.9% 100 ML
     Route: 042
  29. AMOXICILLIN\CLAVULANATE POTASSIUM [Concomitant]
     Active Substance: AMOXICILLIN\CLAVULANATE POTASSIUM
     Indication: Product used for unknown indication
     Dosage: 875 MG
  30. TRAMADOL [Concomitant]
     Active Substance: TRAMADOL
     Indication: Pain
     Route: 048
  31. TRALEMENT [Concomitant]
     Active Substance: CUPRIC SULFATE\MAGNESIUM SULFATE MONOHYDRATE\SELENIOUS ACID\ZINC SULFATE HEPTAHYDRATE
     Indication: Product used for unknown indication
     Dosage: 1 ML INJECTION
     Route: 042
     Dates: start: 20220719

REACTIONS (47)
  - Near death experience [Unknown]
  - Bedridden [Unknown]
  - Abscess [Recovered/Resolved]
  - Sinus tachycardia [Unknown]
  - Decreased appetite [Unknown]
  - Sepsis [Unknown]
  - Tachypnoea [Unknown]
  - Hypopnoea [Unknown]
  - Dyspnoea [Unknown]
  - Superficial vein thrombosis [Unknown]
  - Hypokalaemia [Unknown]
  - Hypophosphataemia [Unknown]
  - Hypocalcaemia [Unknown]
  - Leukocytosis [Unknown]
  - Pleural effusion [Unknown]
  - Incision site discharge [Unknown]
  - Purulent discharge [Unknown]
  - Gastrointestinal anastomotic leak [Unknown]
  - Infection [Unknown]
  - Pneumothorax [Unknown]
  - Hypoalbuminaemia [Unknown]
  - Thrombocytosis [Unknown]
  - Hypoglycaemia [Unknown]
  - Abdominal discomfort [Unknown]
  - Perforated ulcer [Unknown]
  - Peptic ulcer [Unknown]
  - Haematemesis [Unknown]
  - Anxiety [Unknown]
  - Diarrhoea [Unknown]
  - Pyrexia [Unknown]
  - Device malfunction [Unknown]
  - Fistula [Recovered/Resolved]
  - Anaemia [Unknown]
  - Constipation [Unknown]
  - Gastrooesophageal reflux disease [Unknown]
  - Haematemesis [Unknown]
  - Nausea [Unknown]
  - Vomiting [Unknown]
  - Abdominal pain [Unknown]
  - Economic problem [Unknown]
  - Sedation [Unknown]
  - Pain [Unknown]
  - Oropharyngeal pain [Unknown]
  - Constipation [Unknown]
  - Weight decreased [Unknown]
  - Somnolence [Unknown]
  - Back pain [Unknown]

NARRATIVE: CASE EVENT DATE: 20220518
